FAERS Safety Report 5528696-1 (Version None)
Quarter: 2007Q4

REPORT INFORMATION
  Report Type: 
  Country: None (occurrence: None)
  Receive Date: 20071113
  Receipt Date: 20070815
  Transmission Date: 20080405
  Serious: Yes (Other)
  Sender: FDA-Public Use
  Company Number: WWISSUE-106

PATIENT
  Sex: Male

DRUGS (1)
  1. ETHAMBUTOL HCL [Suspect]
     Dosage: ORAL
     Route: 048
     Dates: start: 20061001, end: 20070801

REACTIONS (1)
  - BLINDNESS [None]
